FAERS Safety Report 7162261-8 (Version None)
Quarter: 2010Q4

REPORT INFORMATION
  Report Type: 
  Country: None (occurrence: None)
  Receive Date: 20101215
  Receipt Date: 20090929
  Transmission Date: 20110411
  Serious: Yes (Other)
  Sender: FDA-Public Use
  Company Number: US-PFIZER INC-2008000583

PATIENT
  Sex: Male
  Weight: 72.109 kg

DRUGS (10)
  1. LYRICA [Suspect]
     Indication: BACK PAIN
     Dosage: 75 MG, 3X/DAY
  2. GABAPENTIN [Suspect]
     Dosage: UNK
  3. LIPITOR [Suspect]
     Indication: BLOOD CHOLESTEROL
     Dosage: 40 MG, 1X/DAY
     Route: 048
  4. LIPITOR [Suspect]
     Indication: HYPERLIPIDAEMIA
  5. PREDNISONE [Suspect]
     Dosage: UNK
  6. ACIPHEX [Concomitant]
  7. PERCOCET [Concomitant]
  8. OLIVE OIL [Concomitant]
  9. FISH OIL [Concomitant]
  10. SEROQUEL [Concomitant]

REACTIONS (24)
  - BLOOD CHOLESTEROL INCREASED [None]
  - CENTRAL NERVOUS SYSTEM INFECTION [None]
  - CENTRAL NERVOUS SYSTEM LESION [None]
  - CONFUSIONAL STATE [None]
  - CONTUSION [None]
  - DECREASED APPETITE [None]
  - HEADACHE [None]
  - HERPES ZOSTER [None]
  - ILL-DEFINED DISORDER [None]
  - MOBILITY DECREASED [None]
  - PARASITE BLOOD TEST POSITIVE [None]
  - PYREXIA [None]
  - RASH [None]
  - RICKETTSIOSIS [None]
  - SENSORY LOSS [None]
  - SKIN DISCOLOURATION [None]
  - SPINAL CORD INFECTION [None]
  - SPINAL DISORDER [None]
  - UNEVALUABLE EVENT [None]
  - VISION BLURRED [None]
  - WEIGHT DECREASED [None]
  - WEIGHT INCREASED [None]
  - WHITE BLOOD CELL COUNT DECREASED [None]
  - WHITE BLOOD CELL COUNT INCREASED [None]
